FAERS Safety Report 15559964 (Version 1)
Quarter: 2018Q4

REPORT INFORMATION
  Report Type: Spontaneous
  Country: US (occurrence: US)
  Receive Date: 20181027
  Receipt Date: 20181027
  Transmission Date: 20190205
  Serious: Yes (Hospitalization, Disabling)
  Sender: FDA-Public Use
  Company Number: None

PATIENT
  Age: 31 Year
  Sex: Female
  Weight: 60.3 kg

DRUGS (14)
  1. INSULIN [Concomitant]
     Active Substance: INSULIN NOS
  2. FIBER [Concomitant]
     Active Substance: PSYLLIUM HUSK
  3. FISH OIL [Concomitant]
     Active Substance: FISH OIL
  4. ASHWAGHANDA [Concomitant]
  5. CARDIO CHELATE [Concomitant]
  6. PROBIOTIC [Concomitant]
     Active Substance: PROBIOTICS NOS
  7. CINNAMON. [Concomitant]
     Active Substance: CINNAMON
  8. ZONISAMIDE. [Suspect]
     Active Substance: ZONISAMIDE
     Indication: EPILEPSY
     Dosage: ?          QUANTITY:4 CAPSULE(S);?
     Route: 048
     Dates: start: 20060901, end: 20160906
  9. APPLE CIDER VINEGAR [Concomitant]
     Active Substance: APPLE CIDER VINEGAR
  10. GLUTAMINE [Concomitant]
     Active Substance: GLUTAMINE
  11. INSULIN PUMP [Concomitant]
     Active Substance: INSULIN NOS
  12. GLUCOMETER [Concomitant]
  13. DULOXETINE. [Concomitant]
     Active Substance: DULOXETINE
  14. IRON [Concomitant]
     Active Substance: IRON

REACTIONS (2)
  - Colitis ulcerative [None]
  - Inflammatory bowel disease [None]

NARRATIVE: CASE EVENT DATE: 20160906
